FAERS Safety Report 14324138 (Version 2)
Quarter: 2018Q4

REPORT INFORMATION
  Report Type: Not Available
  Country: US (occurrence: US)
  Receive Date: 20171226
  Receipt Date: 20181101
  Transmission Date: 20190204
  Serious: No
  Sender: FDA-Public Use
  Company Number: US-NEUROCRINE BIOSCIENCES INC.-2017NBI01410

PATIENT
  Sex: Female

DRUGS (18)
  1. PROAIR HFA [Concomitant]
     Active Substance: ALBUTEROL SULFATE
     Dosage: INHALE 2 PUFFS INTO THE LUNG THREE TIMES DAILY AS NEEDED
  2. PEPCID [Concomitant]
     Active Substance: FAMOTIDINE
     Dosage: 20 RNG BY MOUTH 2 TIMES A CLAY
     Route: 048
  3. XARELTO [Concomitant]
     Active Substance: RIVAROXABAN
     Route: 048
  4. TYLENOL [Concomitant]
     Active Substance: ACETAMINOPHEN
     Dosage: 1,000 MG BY MOUTH EVERY 6 HOURS AS NEEDED
     Route: 048
  5. LYRICA [Concomitant]
     Active Substance: PREGABALIN
     Dosage: 150 MG ONE CAPSULE BY MOUTH 2 TIMES A DAY
     Route: 048
  6. INGREZZA [Suspect]
     Active Substance: VALBENAZINE
     Indication: TARDIVE DYSKINESIA
     Route: 048
     Dates: start: 20170724, end: 2017
  7. VALIUM [Concomitant]
     Active Substance: DIAZEPAM
     Dosage: 1 TABLET TWICE A DAY
  8. FERGON [Concomitant]
     Active Substance: FERROUS GLUCONATE
     Dosage: 324 MG BY MOUTH DAILY WITH BREAKFAST.
     Route: 048
  9. SYNTHROID [Concomitant]
     Active Substance: LEVOTHYROXINE SODIUM
     Dosage: 50 MCG BY MOUTH EVERY MORNING BEFORE BREAKFAST
     Route: 048
  10. LEVOTHROID [Concomitant]
     Active Substance: LEVOTHYROXINE SODIUM
     Dosage: 50 MCG BY MOUTH EVERY MORNING BEFORE BREAKFAST
     Route: 048
  11. PAXIL [Concomitant]
     Active Substance: PAROXETINE HYDROCHLORIDE
  12. DESYREL [Concomitant]
     Active Substance: TRAZODONE HYDROCHLORIDE
     Dosage: 150 MG THREE TABLETS DAILY WITH FOOD
     Route: 048
  13. PRILOSEC [Concomitant]
     Active Substance: OMEPRAZOLE MAGNESIUM
     Dosage: 20 MG BY MOUTH EVERY MORNING BEFORE BREAKFAST
     Route: 048
  14. INGREZZA [Suspect]
     Active Substance: VALBENAZINE
     Route: 048
     Dates: start: 2017, end: 20171023
  15. CLOZARIL [Concomitant]
     Active Substance: CLOZAPINE
     Dosage: 5 TABLETS (125 MG) FOUR TIMES A DAY
     Route: 048
  16. BENADRYL [Concomitant]
     Active Substance: DIPHENHYDRAMINE HYDROCHLORIDE
     Dosage: 1 CAPSULE (25 MG TOTAL) BY MOUTH 2 TIMES A DAY AS NEEDED
     Route: 048
  17. MOBIC [Concomitant]
     Active Substance: MELOXICAM
     Route: 048
  18. SANCTURA [Concomitant]
     Active Substance: TROSPIUM CHLORIDE
     Route: 048

REACTIONS (2)
  - Treatment noncompliance [Unknown]
  - Tardive dyskinesia [Recovered/Resolved]

NARRATIVE: CASE EVENT DATE: 2017
